FAERS Safety Report 21925439 (Version 1)
Quarter: 2023Q1

REPORT INFORMATION
  Report Type: Spontaneous
  Country: DE (occurrence: DE)
  Receive Date: 20230130
  Receipt Date: 20230130
  Transmission Date: 20230417
  Serious: Yes (Hospitalization)
  Sender: FDA-Public Use
  Company Number: DE-ADRED-06782-01

PATIENT
  Age: 21 Year
  Sex: Female

DRUGS (4)
  1. MORPHINE [Suspect]
     Active Substance: MORPHINE
     Indication: Product used for unknown indication
     Dosage: 5 MILLIGRAM, BY EMERGENCY PHYSICIAN, INJECTION/INFUSION SOLUTION
     Route: 040
  2. NALOXONE HYDROCHLORIDE\TILIDINE HYDROCHLORIDE [Suspect]
     Active Substance: NALOXONE HYDROCHLORIDE\TILIDINE HYDROCHLORIDE
     Indication: Product used for unknown indication
     Dosage: 8/100 MG, , TWO HUNDRED MG TAKEN IN TOTAL ON THE NIGHT OF MAY ELEVENTH TO TWELFTH, TABLETS
     Route: 048
     Dates: start: 20220511
  3. METAMIZOL [Concomitant]
     Active Substance: METAMIZOLE SODIUM
     Indication: Product used for unknown indication
     Dosage: 2.5 GRAM, BY EMERGENCY PHYSICIAN, INJECTION/INFUSION SOLUTION
     Route: 040
  4. METAMIZOL [Concomitant]
     Active Substance: METAMIZOLE SODIUM
     Indication: Product used for unknown indication
     Dosage: 40 GTT, TAKEN ON THE NIGHT OF MAY ELEVENTH TO TWELFTH, DROPS
     Route: 048
     Dates: start: 20220511

REACTIONS (9)
  - Back pain [Recovered/Resolved]
  - Abdominal pain upper [Recovered/Resolved]
  - Mallory-Weiss syndrome [Recovered/Resolved]
  - Pain [Recovered/Resolved]
  - Nausea [Recovered/Resolved]
  - Vomiting [Recovered/Resolved]
  - Back pain [Recovered/Resolved]
  - Product administration error [Recovered/Resolved]
  - Haematemesis [Recovered/Resolved]

NARRATIVE: CASE EVENT DATE: 20210511
